FAERS Safety Report 12961733 (Version 1)
Quarter: 2016Q4

REPORT INFORMATION
  Report Type: Spontaneous
  Country: BR (occurrence: BR)
  Receive Date: 20161121
  Receipt Date: 20161121
  Transmission Date: 20170207
  Serious: Yes (Other)
  Sender: FDA-Public Use
  Company Number: BR-JNJFOC-20161115678

PATIENT
  Age: 46 Year
  Sex: Female

DRUGS (2)
  1. XARELTO [Suspect]
     Active Substance: RIVAROXABAN
     Indication: DEEP VEIN THROMBOSIS
     Route: 048
     Dates: start: 2015
  2. YAZ [Suspect]
     Active Substance: DROSPIRENONE\ETHINYL ESTRADIOL
     Indication: UTERINE LEIOMYOMA
     Route: 048
     Dates: start: 2010, end: 20150104

REACTIONS (8)
  - Off label use [Unknown]
  - Depression [Unknown]
  - Pain in extremity [Unknown]
  - Iron deficiency anaemia [Unknown]
  - Peripheral swelling [Unknown]
  - Menorrhagia [Unknown]
  - Deep vein thrombosis [Unknown]
  - Iron deficiency [Unknown]

NARRATIVE: CASE EVENT DATE: 20150105
